FAERS Safety Report 23603893 (Version 1)
Quarter: 2024Q1

REPORT INFORMATION
  Report Type: Spontaneous
  Country: US (occurrence: US)
  Receive Date: 20240307
  Receipt Date: 20240307
  Transmission Date: 20240410
  Serious: No
  Sender: FDA-Public Use
  Company Number: US-AMGEN-USASP2024040302

PATIENT
  Age: 69 Year
  Sex: Male

DRUGS (5)
  1. CARFILZOMIB [Suspect]
     Active Substance: CARFILZOMIB
     Indication: Lymphoplasmacytoid lymphoma/immunocytoma
     Dosage: UNK (SEVEN CYCLES)
     Route: 065
  2. CARFILZOMIB [Suspect]
     Active Substance: CARFILZOMIB
     Indication: Off label use
  3. RITUXIMAB [Suspect]
     Active Substance: RITUXIMAB
     Indication: Lymphoplasmacytoid lymphoma/immunocytoma
     Dosage: UNK (SEVEN CYCLES)
     Route: 065
  4. CYCLOPHOSPHAMIDE [Suspect]
     Active Substance: CYCLOPHOSPHAMIDE
     Indication: Lymphoplasmacytoid lymphoma/immunocytoma
     Dosage: UNK (SEVEN CYCLES)
     Route: 065
  5. DEXAMETHASONE [Suspect]
     Active Substance: DEXAMETHASONE
     Indication: Lymphoplasmacytoid lymphoma/immunocytoma
     Dosage: UNK (SEVEN CYCLES)
     Route: 065

REACTIONS (1)
  - Off label use [Unknown]
